FAERS Safety Report 6656883 (Version 2)
Quarter: 2020Q2

REPORT INFORMATION
  Report Type: Spontaneous
  Country: US (occurrence: US)
  Receive Date: 20080604
  Receipt Date: 20200602
  Transmission Date: 20200714
  Serious: Yes (Hospitalization)
  Sender: FDA-Public Use
  Company Number: US-TEVA-172173USA

PATIENT
  Age: 46 Year
  Sex: Female

DRUGS (4)
  1. COPAXONE [Suspect]
     Active Substance: GLATIRAMER ACETATE
     Indication: MULTIPLE SCLEROSIS
     Route: 058
  2. NAPROXEN. [Concomitant]
     Active Substance: NAPROXEN
  3. TIZANIDINE. [Concomitant]
     Active Substance: TIZANIDINE
  4. BACLOFEN. [Concomitant]
     Active Substance: BACLOFEN

REACTIONS (4)
  - Liver transplant [Unknown]
  - Oedema [Unknown]
  - Acute hepatic failure [Unknown]
  - Jaundice [Unknown]

NARRATIVE: CASE EVENT DATE: 20080510
